FAERS Safety Report 12115818 (Version 2)
Quarter: 2016Q2

REPORT INFORMATION
  Report Type: Spontaneous
  Country: US (occurrence: US)
  Receive Date: 20160225
  Receipt Date: 20160418
  Transmission Date: 20160815
  Serious: No
  Sender: FDA-Public Use
  Company Number: US-GLAXOSMITHKLINE-US2016025825

PATIENT
  Age: 41 Year
  Sex: Male

DRUGS (2)
  1. VERAMYST [Suspect]
     Active Substance: FLUTICASONE FUROATE
     Indication: SEASONAL ALLERGY
     Dosage: 2 SPRAYS IN EACH NOSTRIL, QD
     Route: 045
     Dates: start: 2011
  2. VERAMYST [Suspect]
     Active Substance: FLUTICASONE FUROATE
     Dosage: 1 PUFF IN EACH NOSTRIL, QD
     Route: 045

REACTIONS (4)
  - Product quality issue [Unknown]
  - Hypersensitivity [Recovered/Resolved]
  - Underdose [Unknown]
  - Sneezing [Recovered/Resolved]

NARRATIVE: CASE EVENT DATE: 201602
